FAERS Safety Report 7968042-7 (Version None)
Quarter: 2011Q4

REPORT INFORMATION
  Report Type: 
  Country: None (occurrence: None)
  Receive Date: 20111207
  Receipt Date: 20111121
  Transmission Date: 20120403
  Serious: Yes (Other)
  Sender: FDA-Public Use
  Company Number: 2011AP002779

PATIENT
  Age: 57 Year
  Sex: Male

DRUGS (4)
  1. CANDESARTAN CILEXETIL [Concomitant]
  2. ZOPICLONE (ZOPICLONE) [Concomitant]
  3. PRAVASTATIN [Suspect]
     Indication: PRODUCT USED FOR UNKNOWN INDICATION
     Dates: start: 20111005
  4. CO-DYDRAMOL (PARAMOL-118) [Concomitant]

REACTIONS (2)
  - DIZZINESS [None]
  - HYPERHIDROSIS [None]
